FAERS Safety Report 5924621-X (Version None)
Quarter: 2008Q3

REPORT INFORMATION
  Report Type: 
  Country: None (occurrence: None)
  Receive Date: 20080909
  Receipt Date: 20080403
  Transmission Date: 20090109
  Serious: Yes (Hospitalization, Other)
  Sender: FDA-Public Use
  Company Number: 163-20785-08021476

PATIENT
  Age: 50 Year
  Sex: Female

DRUGS (2)
  1. THALOMID [Suspect]
     Indication: MULTIPLE MYELOMA
     Dosage: 150MG - 50 MG, DAILY, ORAL ; 100MG - 200MG, DAILY, ORAL
     Route: 048
     Dates: start: 20071101, end: 20071201
  2. THALOMID [Suspect]
     Indication: MULTIPLE MYELOMA
     Dosage: 150MG - 50 MG, DAILY, ORAL ; 100MG - 200MG, DAILY, ORAL
     Route: 048
     Dates: start: 20071226, end: 20080201

REACTIONS (3)
  - BONE PAIN [None]
  - NEUROPATHY PERIPHERAL [None]
  - SPINAL DISORDER [None]
